FAERS Safety Report 6830652-8 (Version None)
Quarter: 2010Q3

REPORT INFORMATION
  Report Type: 
  Country: None (occurrence: None)
  Receive Date: 20100712
  Receipt Date: 20100630
  Transmission Date: 20110219
  Serious: Yes (Other)
  Sender: FDA-Public Use
  Company Number: US-BAYER-200936530NA

PATIENT
  Age: 35 Year
  Sex: Female
  Weight: 52 kg

DRUGS (1)
  1. MIRENA [Suspect]
     Indication: CONTRACEPTION
     Dosage: CONTINUOUS
     Route: 015
     Dates: start: 20090703, end: 20090925

REACTIONS (9)
  - ABDOMINAL DISCOMFORT [None]
  - ABDOMINAL PAIN [None]
  - DEVICE DISLOCATION [None]
  - PAIN [None]
  - POST ABORTION HAEMORRHAGE [None]
  - PROCEDURAL PAIN [None]
  - SCAR [None]
  - SKIN IRRITATION [None]
  - UTERINE PERFORATION [None]
